FAERS Safety Report 6914600-8 (Version None)
Quarter: 2010Q3

REPORT INFORMATION
  Report Type: 
  Country: None (occurrence: None)
  Receive Date: 20100804
  Receipt Date: 20100720
  Transmission Date: 20110219
  Serious: Yes (Hospitalization)
  Sender: FDA-Public Use
  Company Number: 2010003025

PATIENT
  Age: 78 Year
  Sex: Female

DRUGS (3)
  1. ERLOTINIB (ERLOTINIB) (TABLET) (ERLOTINIB) [Suspect]
     Indication: ADENOCARCINOMA PANCREAS
     Dosage: ORAL
     Route: 048
     Dates: start: 20100525
  2. GEMCITABINE [Suspect]
     Indication: ADENOCARCINOMA PANCREAS
     Dosage: INTRAVENOUS
     Route: 042
     Dates: start: 20100525
  3. PANITUMUMAB [Suspect]
     Indication: ADENOCARCINOMA PANCREAS
     Dosage: INTRAVENOUS
     Route: 042
     Dates: start: 20100525

REACTIONS (7)
  - ASTHENIA [None]
  - HYPOALBUMINAEMIA [None]
  - HYPOCALCAEMIA [None]
  - HYPONATRAEMIA [None]
  - LETHARGY [None]
  - PRURITUS [None]
  - PYREXIA [None]
